FAERS Safety Report 13492839 (Version 2)
Quarter: 2017Q2

REPORT INFORMATION
  Report Type: Spontaneous
  Country: SE (occurrence: SE)
  Receive Date: 20170427
  Receipt Date: 20170502
  Transmission Date: 20170830
  Serious: Yes (Hospitalization)
  Sender: FDA-Public Use
  Company Number: SE-JNJFOC-20170426592

PATIENT
  Age: 59 Year
  Sex: Female

DRUGS (3)
  1. FURADANTIN [Concomitant]
     Active Substance: NITROFURANTOIN
     Route: 065
  2. METHOTREXATE. [Concomitant]
     Active Substance: METHOTREXATE
     Route: 065
  3. SIMPONI [Suspect]
     Active Substance: GOLIMUMAB
     Indication: PSORIATIC ARTHROPATHY
     Route: 058
     Dates: start: 20150304, end: 20170313

REACTIONS (1)
  - Renal abscess [Not Recovered/Not Resolved]

NARRATIVE: CASE EVENT DATE: 20170313
